FAERS Safety Report 8034458-6 (Version None)
Quarter: 2012Q1

REPORT INFORMATION
  Report Type: 
  Country: None (occurrence: None)
  Receive Date: 20120110
  Receipt Date: 20120105
  Transmission Date: 20120608
  Serious: Yes (Other)
  Sender: FDA-Public Use
  Company Number: BR-ABBOTT-12P-020-0889551-00

PATIENT
  Sex: Female
  Weight: 60 kg

DRUGS (1)
  1. HUMIRA [Suspect]
     Indication: ANKYLOSING SPONDYLITIS
     Route: 058
     Dates: start: 20100130, end: 20110701

REACTIONS (6)
  - IMMUNOSUPPRESSION [None]
  - ENDOMETRIOSIS [None]
  - ADENOMYOSIS [None]
  - RESPIRATORY TRACT INFECTION [None]
  - SINUSITIS [None]
  - INFLUENZA [None]
